FAERS Safety Report 8591015-0 (Version None)
Quarter: 2012Q3

REPORT INFORMATION
  Report Type: 
  Country: None (occurrence: None)
  Receive Date: 20120813
  Receipt Date: 20120802
  Transmission Date: 20120928
  Serious: Yes (Other)
  Sender: FDA-Public Use
  Company Number: DE-PFIZER INC-2012185538

PATIENT
  Age: 41 Year
  Sex: Female

DRUGS (1)
  1. EPINEPHRINE [Suspect]
     Dosage: MAXIMUM OF 1 VIAL (INTAKE NOT PROVEN)
     Route: 058
     Dates: start: 20120723, end: 20120723

REACTIONS (6)
  - TACHYCARDIA [None]
  - ACCIDENTAL EXPOSURE [None]
  - SYSTOLIC HYPERTENSION [None]
  - INJECTION SITE ANAESTHESIA [None]
  - SKIN DISCOLOURATION [None]
  - INJECTION SITE SWELLING [None]
